FAERS Safety Report 21293761 (Version 2)
Quarter: 2022Q4

REPORT INFORMATION
  Report Type: Spontaneous
  Country: US (occurrence: US)
  Receive Date: 20220905
  Receipt Date: 20221122
  Transmission Date: 20230113
  Serious: Yes (Other)
  Sender: FDA-Public Use
  Company Number: US-SA-SAC20220902000876

PATIENT
  Age: 75 Year
  Sex: Female

DRUGS (12)
  1. DUPIXENT [Suspect]
     Active Substance: DUPILUMAB
     Indication: Asthma
     Dosage: 200 MG, 1X
     Route: 058
     Dates: start: 20220829
  2. DUPIXENT [Suspect]
     Active Substance: DUPILUMAB
     Indication: Dermatitis atopic
  3. BUPROPION [Concomitant]
     Active Substance: BUPROPION
  4. PREDNISONE [Concomitant]
     Active Substance: PREDNISONE
  5. NEFAZODONE [Concomitant]
     Active Substance: NEFAZODONE
  6. CALCIUM [Concomitant]
     Active Substance: CALCIUM
  7. PREVACID [Concomitant]
     Active Substance: LANSOPRAZOLE
  8. VITAMIN D NOS [Concomitant]
     Active Substance: VITAMIN D NOS
  9. XANAX [Concomitant]
     Active Substance: ALPRAZOLAM
  10. ALPRAZOLAM [Concomitant]
     Active Substance: ALPRAZOLAM
  11. ETHACRYNIC ACID [Concomitant]
     Active Substance: ETHACRYNIC ACID
  12. METOPROLOL [Concomitant]
     Active Substance: METOPROLOL

REACTIONS (2)
  - Chronic kidney disease [Unknown]
  - Product use issue [Unknown]

NARRATIVE: CASE EVENT DATE: 20220829
